FAERS Safety Report 7027226-5 (Version None)
Quarter: 2010Q4

REPORT INFORMATION
  Report Type: 
  Country: None (occurrence: None)
  Receive Date: 20101004
  Receipt Date: 20100820
  Transmission Date: 20110411
  Serious: Yes (Other)
  Sender: FDA-Public Use
  Company Number: US-BAXTER-2010BH003604

PATIENT
  Age: 46 Year
  Sex: Female
  Weight: 72 kg

DRUGS (28)
  1. HEPARIN SODIUM INJECTION [Suspect]
     Indication: HAEMODIALYSIS
     Route: 042
  2. HEPARIN SODIUM INJECTION [Suspect]
     Route: 042
     Dates: start: 20080301
  3. HEPARIN SODIUM INJECTION [Suspect]
     Route: 042
     Dates: start: 20080303, end: 20080303
  4. HEPARIN SODIUM INJECTION [Suspect]
     Route: 042
     Dates: start: 20080304, end: 20080304
  5. COREG [Concomitant]
     Indication: PRODUCT USED FOR UNKNOWN INDICATION
     Route: 065
  6. VITAMINS [Concomitant]
     Indication: PRODUCT USED FOR UNKNOWN INDICATION
     Route: 065
  7. LISINOPRIL [Concomitant]
     Indication: PRODUCT USED FOR UNKNOWN INDICATION
     Route: 065
  8. ANTIBIOTICS [Concomitant]
     Indication: PRODUCT USED FOR UNKNOWN INDICATION
     Route: 065
  9. IRON [Concomitant]
     Indication: PRODUCT USED FOR UNKNOWN INDICATION
     Route: 065
  10. ASPIRIN [Concomitant]
     Indication: PRODUCT USED FOR UNKNOWN INDICATION
     Route: 065
  11. CLONIDINE [Concomitant]
     Indication: PRODUCT USED FOR UNKNOWN INDICATION
  12. HYDRALAZINE HCL [Concomitant]
     Indication: PRODUCT USED FOR UNKNOWN INDICATION
     Route: 065
  13. LASIX [Concomitant]
     Indication: PRODUCT USED FOR UNKNOWN INDICATION
     Route: 065
  14. MAVIK [Concomitant]
     Indication: PRODUCT USED FOR UNKNOWN INDICATION
     Route: 065
  15. AMLODIPINE [Concomitant]
     Indication: PRODUCT USED FOR UNKNOWN INDICATION
     Route: 065
  16. NOVOLIN 70/30 [Concomitant]
     Indication: PRODUCT USED FOR UNKNOWN INDICATION
     Route: 065
  17. NOVOLIN 70/30 [Concomitant]
     Route: 065
  18. POTASSIUM CHLORIDE [Concomitant]
     Indication: PRODUCT USED FOR UNKNOWN INDICATION
     Route: 065
  19. PANTOPRAZOLE [Concomitant]
     Indication: PRODUCT USED FOR UNKNOWN INDICATION
     Route: 065
  20. SIMVASTATIN [Concomitant]
     Indication: PRODUCT USED FOR UNKNOWN INDICATION
     Route: 065
  21. EPOGEN [Concomitant]
     Indication: PRODUCT USED FOR UNKNOWN INDICATION
     Route: 042
  22. NITROGLYCERIN [Concomitant]
     Indication: PRODUCT USED FOR UNKNOWN INDICATION
     Route: 060
  23. LIDOCAINE [Concomitant]
     Indication: PRODUCT USED FOR UNKNOWN INDICATION
     Route: 059
  24. SALINE [Concomitant]
     Indication: PRODUCT USED FOR UNKNOWN INDICATION
     Route: 042
  25. DIPHENHYDRAMINE [Concomitant]
     Indication: PRODUCT USED FOR UNKNOWN INDICATION
     Route: 042
  26. LOPERAMIDE [Concomitant]
     Indication: PRODUCT USED FOR UNKNOWN INDICATION
     Route: 048
  27. ACETAMINOPHEN [Concomitant]
     Indication: PRODUCT USED FOR UNKNOWN INDICATION
     Route: 048
  28. VASOTEC [Concomitant]
     Indication: PRODUCT USED FOR UNKNOWN INDICATION
     Route: 065

REACTIONS (8)
  - BACK PAIN [None]
  - DYSPNOEA [None]
  - HEART RATE IRREGULAR [None]
  - HYPOAESTHESIA [None]
  - HYPOTENSION [None]
  - PARAESTHESIA [None]
  - RASH [None]
  - VISION BLURRED [None]
